FAERS Safety Report 7970013-1 (Version None)
Quarter: 2011Q4

REPORT INFORMATION
  Report Type: 
  Country: None (occurrence: None)
  Receive Date: 20111212
  Receipt Date: 20111130
  Transmission Date: 20120403
  Serious: Yes (Hospitalization)
  Sender: FDA-Public Use
  Company Number: BR-US-EMD SERONO, INC.-7095435

PATIENT
  Sex: Female

DRUGS (3)
  1. REBIF [Suspect]
     Indication: RELAPSING-REMITTING MULTIPLE SCLEROSIS
     Dates: start: 20100108, end: 20110701
  2. ACETAMINOPHEN [Concomitant]
  3. REBIF [Suspect]
     Dates: start: 20110901, end: 20111121

REACTIONS (3)
  - BLINDNESS [None]
  - HYPOAESTHESIA [None]
  - DRUG INEFFECTIVE [None]
